FAERS Safety Report 17170058 (Version 1)
Quarter: 2019Q4

REPORT INFORMATION
  Report Type: Spontaneous
  Country: GB (occurrence: GB)
  Receive Date: 20191218
  Receipt Date: 20191218
  Transmission Date: 20200122
  Serious: Yes (Other)
  Sender: FDA-Public Use
  Company Number: GB-GLAXOSMITHKLINE-GB2019226478

PATIENT
  Age: 61 Year
  Sex: Female
  Weight: 67 kg

DRUGS (1)
  1. MEPOLIZUMAB [Suspect]
     Active Substance: MEPOLIZUMAB
     Indication: ASTHMA
     Dosage: 100 MG
     Route: 051
     Dates: start: 20181201, end: 20191126

REACTIONS (2)
  - Urinary tract infection [Recovered/Resolved]
  - Pyelonephritis [Unknown]

NARRATIVE: CASE EVENT DATE: 201812
